FAERS Safety Report 16074057 (Version 1)
Quarter: 2019Q1

REPORT INFORMATION
  Report Type: Spontaneous
  Country: ES (occurrence: ES)
  Receive Date: 20190314
  Receipt Date: 20190314
  Transmission Date: 20190418
  Serious: Yes (Other)
  Sender: FDA-Public Use
  Company Number: ES-PFIZER INC-2019108681

PATIENT
  Sex: Male

DRUGS (1)
  1. SILDENAFIL CITRATE. [Suspect]
     Active Substance: SILDENAFIL CITRATE
     Dosage: 100 MG, UNK
     Route: 048
     Dates: start: 20190216

REACTIONS (5)
  - Asthenia [Unknown]
  - Tachycardia [Unknown]
  - Pyrexia [Unknown]
  - Chills [Unknown]
  - Diplopia [Unknown]

NARRATIVE: CASE EVENT DATE: 20190217
